FAERS Safety Report 7818198-1 (Version None)
Quarter: 2011Q4

REPORT INFORMATION
  Report Type: 
  Country: None (occurrence: None)
  Receive Date: 20111017
  Receipt Date: 20111005
  Transmission Date: 20120403
  Serious: Yes (Other)
  Sender: FDA-Public Use
  Company Number: PHEH2011US06040

PATIENT
  Sex: Male

DRUGS (17)
  1. ANALGESICS [Concomitant]
     Indication: BACK PAIN
  2. DIOVAN [Suspect]
  3. LISINOPRIL [Suspect]
  4. ASPIRIN [Concomitant]
  5. VALTURNA [Suspect]
  6. FENTANYL [Concomitant]
     Indication: BACK PAIN
  7. PRAVASTATIN SODIUM [Concomitant]
     Indication: BLOOD CHOLESTEROL
  8. CLONAZEPAM [Concomitant]
     Indication: ANXIETY
  9. TEKTURNA [Suspect]
  10. HYDROCODONE BITARTRATE [Concomitant]
     Indication: BACK PAIN
  11. FISH OIL [Concomitant]
  12. ANTIHYPERTENSIVES [Suspect]
     Indication: BLOOD PRESSURE
     Dosage: 1 DF, UNK
  13. SYNTHROID [Concomitant]
     Indication: THYROID DISORDER
  14. CALCIUM CARBONATE [Concomitant]
  15. CYMBALTA [Concomitant]
     Indication: ANXIETY
  16. CARISOPRODOL [Concomitant]
  17. SOMA [Concomitant]

REACTIONS (7)
  - LOSS OF CONSCIOUSNESS [None]
  - HEAD INJURY [None]
  - DRUG INEFFECTIVE [None]
  - ROAD TRAFFIC ACCIDENT [None]
  - HAEMORRHAGE [None]
  - VERTIGO [None]
  - BLOOD PRESSURE FLUCTUATION [None]
